FAERS Safety Report 20391562 (Version 1)
Quarter: 2022Q1

REPORT INFORMATION
  Report Type: Spontaneous
  Country: US (occurrence: US)
  Receive Date: 20220128
  Receipt Date: 20220128
  Transmission Date: 20220423
  Serious: No
  Sender: FDA-Public Use
  Company Number: US-APOTEX-2022AP002072

PATIENT
  Sex: Female

DRUGS (1)
  1. FENTANYL TRANSDERMAL SYSTEM [Suspect]
     Active Substance: FENTANYL
     Indication: Pain
     Dosage: 1 DOSAGE FORM, Q.O.D. (1 PATCH EVERY 48 HOURS)
     Route: 062

REACTIONS (4)
  - Product substitution issue [Unknown]
  - Application site irritation [Unknown]
  - Product adhesion issue [Unknown]
  - Product size issue [Unknown]
